FAERS Safety Report 7769958-7 (Version None)
Quarter: 2011Q3

REPORT INFORMATION
  Report Type: 
  Country: None (occurrence: None)
  Receive Date: 20110922
  Receipt Date: 20110920
  Transmission Date: 20111222
  Serious: Yes (Hospitalization)
  Sender: FDA-Public Use
  Company Number: US-GLAXOSMITHKLINE-B0705767A

PATIENT
  Age: 50 Year
  Sex: Female
  Weight: 75 kg

DRUGS (7)
  1. TEMAZEPAM [Concomitant]
  2. CARDIZEM [Concomitant]
  3. IRBESARTAN [Concomitant]
  4. ZOLOFT [Concomitant]
  5. AVANDIA [Suspect]
     Indication: DIABETES MELLITUS
     Dosage: 4MG TWICE PER DAY
     Route: 048
     Dates: start: 20010101, end: 20100701
  6. INSULIN [Concomitant]
  7. CLONIDINE [Concomitant]

REACTIONS (2)
  - ELECTROCARDIOGRAM ABNORMAL [None]
  - CARDIOVASCULAR DISORDER [None]
